FAERS Safety Report 5727833-3 (Version None)
Quarter: 2008Q2

REPORT INFORMATION
  Report Type: 
  Country: None (occurrence: None)
  Receive Date: 20080505
  Receipt Date: 20080422
  Transmission Date: 20081010
  Serious: Yes (Hospitalization)
  Sender: FDA-Public Use
  Company Number: US-ELI_LILLY_AND_COMPANY-US200804001576

PATIENT
  Age: 78 Year
  Sex: Female
  Weight: 46.712 kg

DRUGS (15)
  1. FORTEO [Suspect]
     Indication: OSTEOPOROSIS
     Dosage: 20 UG, DAILY (1/D)
     Dates: start: 20070212
  2. CALCIUM [Concomitant]
  3. ALBUTEROL [Concomitant]
     Route: 055
  4. COMBIVENT [Concomitant]
     Route: 055
  5. DUONEB [Concomitant]
     Route: 055
  6. ADVAIR HFA [Concomitant]
     Route: 055
  7. SINGULAIR [Concomitant]
  8. ATIVAN [Concomitant]
  9. MULTI-VITAMIN [Concomitant]
  10. FISH OIL [Concomitant]
  11. PREMARIN [Concomitant]
     Route: 067
  12. SIMVASTATIN [Concomitant]
  13. ASCORBIC ACID [Concomitant]
  14. OXYGEN [Concomitant]
  15. ASPIRIN [Concomitant]

REACTIONS (14)
  - AGEUSIA [None]
  - CONSTIPATION [None]
  - DIZZINESS [None]
  - DYSGEUSIA [None]
  - FEELING ABNORMAL [None]
  - INTESTINAL OBSTRUCTION [None]
  - MOVEMENT DISORDER [None]
  - NAUSEA [None]
  - PAIN [None]
  - PAIN IN EXTREMITY [None]
  - ROTATOR CUFF SYNDROME [None]
  - VOMITING [None]
  - WEIGHT DECREASED [None]
  - WEIGHT GAIN POOR [None]
